FAERS Safety Report 7450735-1 (Version None)
Quarter: 2011Q2

REPORT INFORMATION
  Report Type: 
  Country: None (occurrence: None)
  Receive Date: 20110502
  Receipt Date: 20110427
  Transmission Date: 20111010
  Serious: Yes (Hospitalization, Other)
  Sender: FDA-Public Use
  Company Number: GB-TEVA-265209ISR

PATIENT
  Age: 60 Year
  Sex: Female

DRUGS (16)
  1. ATENOLOL [Suspect]
     Dosage: 25 MILLIGRAM;
  2. CITALOPRAM [Suspect]
  3. SERTRALINE [Suspect]
  4. ASPIRIN [Suspect]
     Dosage: 75 MILLIGRAM;
  5. SERTRALINE [Suspect]
     Dosage: 100 MILLIGRAM;
  6. PREGABALIN [Suspect]
     Dosage: 300 MILLIGRAM;
  7. PREGABALIN [Suspect]
     Dosage: 225 MILLIGRAM;
     Dates: start: 20100701, end: 20100801
  8. PROMETHAZINE [Suspect]
     Indication: SLEEP DISORDER
  9. DIAZEPAM [Suspect]
  10. SERTRALINE [Suspect]
  11. PREGABALIN [Suspect]
     Indication: GENERALISED ANXIETY DISORDER
     Dosage: 150 MILLIGRAM;
     Dates: start: 20100501
  12. PREGABALIN [Suspect]
     Dates: end: 20100913
  13. SIMVASTATIN [Suspect]
     Dosage: 20 MILLIGRAM;
  14. ZOPICLONE [Suspect]
     Indication: SLEEP DISORDER
     Dosage: 3.75 MILLIGRAM;
  15. DOSULEPIN [Suspect]
     Indication: DEPRESSION
     Dosage: 50 MILLIGRAM;
  16. PROMETHAZINE [Suspect]
     Indication: ANXIETY

REACTIONS (27)
  - MALAISE [None]
  - MYALGIA [None]
  - OVERDOSE [None]
  - VOMITING [None]
  - ANXIETY [None]
  - LETHARGY [None]
  - URINARY TRACT INFECTION [None]
  - AGGRESSION [None]
  - HYPOCHONDRIASIS [None]
  - MUSCLE TWITCHING [None]
  - WEIGHT DECREASED [None]
  - SYNCOPE [None]
  - MUSCLE ATROPHY [None]
  - ANAEMIA [None]
  - DECREASED APPETITE [None]
  - CONFUSIONAL STATE [None]
  - DEPRESSION [None]
  - ORAL DISCOMFORT [None]
  - PAIN [None]
  - DIARRHOEA [None]
  - PANIC ATTACK [None]
  - TREMOR [None]
  - DIZZINESS [None]
  - INSOMNIA [None]
  - SUICIDAL IDEATION [None]
  - NAUSEA [None]
  - HYPERHIDROSIS [None]
